FAERS Safety Report 6347167-6 (Version None)
Quarter: 2009Q3

REPORT INFORMATION
  Report Type: 
  Country: None (occurrence: None)
  Receive Date: 20090910
  Receipt Date: 20090902
  Transmission Date: 20100115
  Serious: Yes (Hospitalization, Other)
  Sender: FDA-Public Use
  Company Number: PHBS2002JP02775

PATIENT
  Sex: Female
  Weight: 57 kg

DRUGS (8)
  1. GLEEVEC [Suspect]
     Indication: CHRONIC MYELOID LEUKAEMIA
     Dosage: 400 MG/D
     Route: 048
     Dates: start: 20011210, end: 20090716
  2. MABLIN [Suspect]
     Dosage: 0.2 G DAILY
     Route: 048
     Dates: start: 20010903, end: 20011209
  3. CYMERIN [Suspect]
     Dosage: 50 MG DAILY
     Route: 042
     Dates: start: 20011029, end: 20011029
  4. PERDIPINE [Concomitant]
     Indication: HYPERTENSION
     Route: 048
     Dates: start: 19940101, end: 20020218
  5. TENORMIN [Concomitant]
     Indication: HYPERTENSION
     Dosage: UNK
     Route: 048
     Dates: start: 19940101, end: 20020218
  6. EURODIN [Concomitant]
     Indication: HYPERTENSION
     Dosage: UNK
     Route: 048
     Dates: start: 19960201, end: 20020218
  7. ISALON [Concomitant]
     Dosage: UNK
     Route: 048
     Dates: start: 19950701, end: 20020218
  8. SELBEX [Concomitant]
     Dosage: UNK
     Route: 048
     Dates: start: 19950701, end: 20020218

REACTIONS (2)
  - BONE MARROW FAILURE [None]
  - PURPURA [None]
